FAERS Safety Report 13887782 (Version 4)
Quarter: 2017Q4

REPORT INFORMATION
  Report Type: Spontaneous
  Country: DE (occurrence: DE)
  Receive Date: 20170821
  Receipt Date: 20171006
  Transmission Date: 20180320
  Serious: Yes (Death)
  Sender: FDA-Public Use
  Company Number: DE-CELGENEUS-DEU-20170802632

PATIENT
  Age: 80 Year
  Sex: Male
  Weight: 63 kg

DRUGS (10)
  1. ELOTUZUMAB. [Concomitant]
     Active Substance: ELOTUZUMAB
     Indication: PRODUCT USED FOR UNKNOWN INDICATION
     Route: 065
     Dates: start: 201705, end: 20170725
  2. REVLIMID [Suspect]
     Active Substance: LENALIDOMIDE
     Route: 048
     Dates: start: 201606
  3. RIVAROXABAN [Concomitant]
     Active Substance: RIVAROXABAN
     Indication: PRODUCT USED FOR UNKNOWN INDICATION
     Route: 065
     Dates: end: 20170730
  4. OXYCODON [Concomitant]
     Active Substance: OXYCODONE
     Indication: PRODUCT USED FOR UNKNOWN INDICATION
     Dosage: 60 MILLIGRAM
     Route: 065
     Dates: end: 20170730
  5. REVLIMID [Suspect]
     Active Substance: LENALIDOMIDE
     Route: 048
     Dates: start: 20170711, end: 20170730
  6. DEXAMETHASONE. [Concomitant]
     Active Substance: DEXAMETHASONE
     Route: 048
     Dates: start: 201606, end: 201612
  7. REVLIMID [Suspect]
     Active Substance: LENALIDOMIDE
     Indication: PLASMACYTOMA
     Route: 048
     Dates: start: 201606
  8. REVLIMID [Suspect]
     Active Substance: LENALIDOMIDE
     Dosage: 10 MILLIGRAM
     Route: 048
     Dates: start: 201607, end: 201612
  9. DEXAMETHASONE. [Concomitant]
     Active Substance: DEXAMETHASONE
     Indication: PRODUCT USED FOR UNKNOWN INDICATION
     Dosage: 20 MILLIGRAM
     Route: 048
  10. PREGABALIN. [Concomitant]
     Active Substance: PREGABALIN
     Indication: PRODUCT USED FOR UNKNOWN INDICATION
     Dosage: 300 MILLIGRAM
     Route: 065
     Dates: end: 20170730

REACTIONS (5)
  - Rash [Recovered/Resolved]
  - Ileus [Fatal]
  - Plasma cell myeloma [Fatal]
  - Pneumonia aspiration [Fatal]
  - Vomiting [Fatal]

NARRATIVE: CASE EVENT DATE: 201607
